FAERS Safety Report 5120439-9 (Version None)
Quarter: 2006Q4

REPORT INFORMATION
  Report Type: 
  Country: None (occurrence: None)
  Receive Date: 20061002
  Receipt Date: 20060922
  Transmission Date: 20070319
  Serious: Yes (Other)
  Sender: FDA-Public Use
  Company Number: GXKR2006DK05877

PATIENT
  Age: 60 Year
  Sex: Female
  Weight: 94 kg

DRUGS (3)
  1. METOPROLOL (NGX) (METOPROLOL) UNKNOWN, 100MG [Suspect]
     Indication: HYPERTENSION
     Dosage: 100 MG, ORAL
     Route: 048
     Dates: start: 20060116, end: 20060604
  2. CORODIL COMP (ENALAPRIL MALEATE, HYDROCHLOROTHIAZIDE) [Concomitant]
  3. ZOLPIDEM TARTRATE [Concomitant]

REACTIONS (5)
  - DEPRESSION [None]
  - HEADACHE [None]
  - MUSCLE TWITCHING [None]
  - SPINAL DISORDER [None]
  - STRESS [None]
